FAERS Safety Report 8443691-0 (Version None)
Quarter: 2012Q2

REPORT INFORMATION
  Report Type: 
  Country: None (occurrence: None)
  Receive Date: 20120618
  Receipt Date: 20120531
  Transmission Date: 20120825
  Serious: Yes (Hospitalization)
  Sender: FDA-Public Use
  Company Number: AU-JNJFOC-20120102453

PATIENT
  Sex: Male
  Weight: 76 kg

DRUGS (11)
  1. ABIRATERONE ACETATE [Suspect]
     Route: 048
  2. ABIRATERONE ACETATE [Suspect]
     Indication: PROSTATE CANCER METASTATIC
     Route: 048
     Dates: start: 20111203
  3. ZOLADEX [Concomitant]
     Indication: HORMONE THERAPY
     Route: 065
     Dates: start: 20090401
  4. OXYNORM [Concomitant]
     Indication: PAIN MANAGEMENT
     Route: 065
     Dates: start: 20110101
  5. METOCLOPRAMIDE [Concomitant]
     Indication: PROPHYLAXIS OF NAUSEA AND VOMITING
     Route: 065
     Dates: start: 20110101
  6. OMEPRAZOLE [Concomitant]
     Indication: EPIGASTRIC DISCOMFORT
     Route: 065
     Dates: start: 20110510
  7. HYDROCHLOROTHIAZIDE [Concomitant]
     Indication: HYPERTENSION
     Route: 065
     Dates: start: 20110101
  8. ZANEXTRA [Concomitant]
     Indication: HYPERTENSION
     Route: 065
     Dates: start: 20110510
  9. PREDNISOLONE [Suspect]
     Indication: PROSTATE CANCER METASTATIC
     Route: 048
     Dates: start: 20111203
  10. VITAMIN D [Concomitant]
     Indication: MEDICAL DIET
     Route: 065
     Dates: start: 20110601
  11. ACETAMINOPHEN [Concomitant]
     Indication: PAIN MANAGEMENT
     Route: 065
     Dates: start: 20110101

REACTIONS (1)
  - PAIN [None]
